FAERS Safety Report 23212957 (Version 1)
Quarter: 2023Q4

REPORT INFORMATION
  Report Type: Spontaneous
  Country: US (occurrence: None)
  Receive Date: 20231121
  Receipt Date: 20231121
  Transmission Date: 20240109
  Serious: Yes (Other)
  Sender: FDA-Public Use
  Company Number: None

PATIENT
  Age: 30 Year
  Sex: Female

DRUGS (1)
  1. DEFINITY [Suspect]
     Active Substance: PERFLUTREN
     Indication: Contrast echocardiogram
     Dates: start: 20231115, end: 20231115

REACTIONS (5)
  - Tremor [None]
  - Contrast media reaction [None]
  - Eye movement disorder [None]
  - Seizure [None]
  - Unresponsive to stimuli [None]

NARRATIVE: CASE EVENT DATE: 20231115
